FAERS Safety Report 18642175 (Version 1)
Quarter: 2020Q4

REPORT INFORMATION
  Report Type: Spontaneous
  Country: US (occurrence: US)
  Receive Date: 20201221
  Receipt Date: 20201221
  Transmission Date: 20210114
  Serious: No
  Sender: FDA-Public Use
  Company Number: US-GLAXOSMITHKLINE-US2020AMR246556

PATIENT
  Sex: Female

DRUGS (1)
  1. ANORO ELLIPTA [Suspect]
     Active Substance: UMECLIDINIUM BROMIDE\VILANTEROL TRIFENATATE
     Indication: PRODUCT USED FOR UNKNOWN INDICATION
     Dosage: UNK
     Dates: start: 20200914

REACTIONS (16)
  - Tooth disorder [Recovered/Resolved]
  - Affective disorder [Recovered/Resolved]
  - Gingival discomfort [Recovered/Resolved]
  - Taste disorder [Recovered/Resolved]
  - Depression [Recovered/Resolved]
  - Nausea [Recovered/Resolved]
  - Mood altered [Recovered/Resolved]
  - Pain in extremity [Recovered/Resolved]
  - Abdominal distension [Recovered/Resolved]
  - Micturition urgency [Recovered/Resolved]
  - Headache [Recovered/Resolved]
  - Decreased appetite [Recovered/Resolved]
  - Weight increased [Recovered/Resolved]
  - Dysuria [Recovered/Resolved]
  - Gastrooesophageal reflux disease [Recovered/Resolved]
  - Rhinorrhoea [Recovered/Resolved]
